FAERS Safety Report 11144367 (Version 2)
Quarter: 2015Q3

REPORT INFORMATION
  Report Type: Spontaneous
  Country: US (occurrence: US)
  Receive Date: 20150526
  Receipt Date: 20150820
  Transmission Date: 20151125
  Serious: Yes (Hospitalization)
  Sender: FDA-Public Use
  Company Number: US-PFIZER INC-2015172486

PATIENT
  Age: 71 Year
  Sex: Male
  Weight: 121 kg

DRUGS (2)
  1. TRIPLE ANTIBIOTIC [Suspect]
     Active Substance: BACITRACIN ZINC\NEOMYCIN\NEOMYCIN SULFATE\POLYMYXIN B SULFATE
     Indication: DIABETIC FOOT
     Dosage: UNK
  2. SILVADENE [Suspect]
     Active Substance: SILVER SULFADIAZINE
     Indication: DIABETIC FOOT
     Dosage: UNK
     Dates: start: 20150413, end: 20150507

REACTIONS (3)
  - Drug ineffective [Recovered/Resolved]
  - Localised infection [Recovered/Resolved]
  - Condition aggravated [Recovered/Resolved]

NARRATIVE: CASE EVENT DATE: 20150504
